FAERS Safety Report 13512340 (Version 3)
Quarter: 2018Q2

REPORT INFORMATION
  Report Type: Report from Study
  Country: FR (occurrence: FR)
  Receive Date: 20170504
  Receipt Date: 20180618
  Transmission Date: 20180711
  Serious: Yes (Hospitalization, Other)
  Sender: FDA-Public Use
  Company Number: FR-BIOGEN-2017BI00377861

PATIENT
  Age: 34 Year
  Sex: Male
  Weight: 85 kg

DRUGS (8)
  1. INDOCID [Concomitant]
     Active Substance: INDOMETHACIN
     Indication: POLYARTERITIS NODOSA
     Route: 048
     Dates: start: 20161201
  2. NEOMERCAZOLE [Concomitant]
     Active Substance: CARBIMAZOLE
     Indication: PROPHYLAXIS
     Route: 048
     Dates: start: 20160801
  3. INDOCID [Concomitant]
     Active Substance: INDOMETHACIN
     Route: 065
  4. DOLIPRANE [Concomitant]
     Active Substance: ACETAMINOPHEN
     Indication: PRODUCT USED FOR UNKNOWN INDICATION
     Route: 065
  5. FLUCON [Concomitant]
     Indication: PRODUCT USED FOR UNKNOWN INDICATION
     Route: 047
  6. NEOMERCAZOLE [Concomitant]
     Active Substance: CARBIMAZOLE
     Dosage: 2 TABS IN AM
     Route: 065
  7. DACLIZUMAB HYP [Suspect]
     Active Substance: DACLIZUMAB
     Indication: MULTIPLE SCLEROSIS
     Route: 058
     Dates: start: 20140213, end: 20161020
  8. SIMBRINZA [Concomitant]
     Active Substance: BRIMONIDINE TARTRATE\BRINZOLAMIDE
     Indication: PROPHYLAXIS
     Dosage: 10/2MG
     Route: 048
     Dates: start: 20160616

REACTIONS (1)
  - Perivascular dermatitis [Recovered/Resolved with Sequelae]

NARRATIVE: CASE EVENT DATE: 20170106
